FAERS Safety Report 20742322 (Version 1)
Quarter: 2022Q2

REPORT INFORMATION
  Report Type: Spontaneous
  Country: US (occurrence: None)
  Receive Date: 20220424
  Receipt Date: 20220424
  Transmission Date: 20220721
  Serious: No
  Sender: FDA-Public Use
  Company Number: 2022A137443

PATIENT
  Sex: Female

DRUGS (1)
  1. KOSELUGO [Suspect]
     Active Substance: SELUMETINIB
     Dosage: UNKNOWN
     Route: 048

REACTIONS (1)
  - Serous retinopathy [Unknown]
